FAERS Safety Report 24970496 (Version 2)
Quarter: 2025Q1

REPORT INFORMATION
  Report Type: Spontaneous
  Country: US (occurrence: US)
  Receive Date: 20250214
  Receipt Date: 20250214
  Transmission Date: 20250408
  Serious: No
  Sender: ALEXION PHARMACEUTICALS
  Company Number: US-AstraZeneca-CH-00796447A

PATIENT

DRUGS (2)
  1. BREZTRI [Suspect]
     Active Substance: BUDESONIDE\FORMOTEROL\GLYCOPYRROLATE
     Route: 065
  2. SYMBICORT [Concomitant]
     Active Substance: BUDESONIDE\FORMOTEROL FUMARATE DIHYDRATE
     Route: 065

REACTIONS (6)
  - Dysphonia [Unknown]
  - Hypertension [Unknown]
  - Eye haemorrhage [Unknown]
  - Urinary tract infection [Unknown]
  - Productive cough [Unknown]
  - Therapy interrupted [Unknown]
